FAERS Safety Report 5100974-X (Version None)
Quarter: 2006Q3

REPORT INFORMATION
  Report Type: 
  Country: None (occurrence: None)
  Receive Date: 20060911
  Receipt Date: 20060626
  Transmission Date: 20061208
  Serious: Yes (Life-Threatening, Hospitalization)
  Sender: FDA-Public Use
  Company Number: DE-BAYER-200610817BVD

PATIENT
  Age: 51 Year
  Sex: Male
  Weight: 75 kg

DRUGS (2)
  1. AVELOX [Suspect]
     Indication: PNEUMONIA
     Dosage: AS USED: 400 MG
     Route: 042
     Dates: start: 20060516, end: 20060525
  2. PARACEFAN [Suspect]
     Indication: ALCOHOL WITHDRAWAL SYNDROME
     Route: 042
     Dates: start: 20060521, end: 20060529

REACTIONS (1)
  - ATRIOVENTRICULAR BLOCK THIRD DEGREE [None]
